FAERS Safety Report 5266324-3 (Version None)
Quarter: 2007Q1

REPORT INFORMATION
  Report Type: 
  Country: None (occurrence: None)
  Receive Date: 20070315
  Receipt Date: 20070302
  Transmission Date: 20070707
  Serious: Yes (Hospitalization)
  Sender: FDA-Public Use
  Company Number: GB-NOVOPROD-261279

PATIENT
  Sex: Female

DRUGS (2)
  1. NOVORAPID [Suspect]
     Indication: GESTATIONAL DIABETES
     Dosage: 18+16+20IU, QD
     Route: 058
  2. LEVEMIR [Suspect]
     Indication: GESTATIONAL DIABETES
     Dosage: 32 IU, QD
     Route: 058

REACTIONS (2)
  - MALAISE [None]
  - NAUSEA [None]
